FAERS Safety Report 11512684 (Version 1)
Quarter: 2015Q3

REPORT INFORMATION
  Report Type: Spontaneous
  Country: US (occurrence: None)
  Receive Date: 20150915
  Receipt Date: 20150915
  Transmission Date: 20151125
  Serious: No
  Sender: FDA-Public Use
  Company Number: None

PATIENT
  Age: 24 Year
  Sex: Female
  Weight: 54.89 kg

DRUGS (1)
  1. KENALOG [Suspect]
     Active Substance: TRIAMCINOLONE ACETONIDE
     Indication: RESPIRATORY TRACT INFLAMMATION
     Dosage: ONE SHOT JUST ONCE INTO THE MUSCLE

REACTIONS (3)
  - Injection site scar [None]
  - Kidney infection [None]
  - Injection site atrophy [None]

NARRATIVE: CASE EVENT DATE: 20150314
